FAERS Safety Report 8914036 (Version 1)
Quarter: 2012Q4

REPORT INFORMATION
  Report Type: 
  Country: US (occurrence: US)
  Receive Date: 20121119
  Receipt Date: 20121119
  Transmission Date: 20130627
  Serious: No
  Sender: FDA-Public Use
  Company Number: US-JNJFOC-20121005572

PATIENT
  Age: 36 Year
  Sex: Female
  Weight: 63.5 kg

DRUGS (3)
  1. INVEGA SUSTENNA [Suspect]
     Indication: SCHIZOPHRENIA
     Dosage: Second initiation dose
     Route: 030
  2. INVEGA SUSTENNA [Suspect]
     Indication: SCHIZOPHRENIA
     Dosage: First initiation dose
     Route: 030
     Dates: start: 20121027
  3. ATIVAN [Concomitant]
     Route: 048

REACTIONS (1)
  - Tachycardia [Unknown]
